FAERS Safety Report 4444141-1 (Version None)
Quarter: 2004Q3

REPORT INFORMATION
  Report Type: 
  Country: None (occurrence: None)
  Receive Date: 20040812
  Receipt Date: 20031209
  Transmission Date: 20050211
  Serious: Yes (Hospitalization, Other)
  Sender: FDA-Public Use
  Company Number: US_031299363

PATIENT
  Sex: Female

DRUGS (1)
  1. ILETIN [Suspect]

REACTIONS (1)
  - KETOACIDOSIS [None]
